FAERS Safety Report 4369165-4 (Version None)
Quarter: 2004Q2

REPORT INFORMATION
  Report Type: 
  Country: None (occurrence: None)
  Receive Date: 20040528
  Receipt Date: 20040212
  Transmission Date: 20050107
  Serious: Yes (Other)
  Sender: FDA-Public Use
  Company Number: BE-JNJFOC-20031102972

PATIENT
  Age: 4 Year
  Sex: Female
  Weight: 13.7 kg

DRUGS (4)
  1. PROPULSID [Suspect]
     Indication: GASTROOESOPHAGEAL REFLUX DISEASE
     Dosage: 2.6 MG, 3 IN 1 DAY
     Dates: start: 20030425, end: 20030520
  2. PROPULSID [Suspect]
     Indication: IMPAIRED GASTRIC EMPTYING
     Dosage: 2.6 MG, 3 IN 1 DAY
     Dates: start: 20030425, end: 20030520
  3. PULMICORT [Concomitant]
  4. BRICANYL [Concomitant]

REACTIONS (1)
  - ELECTROCARDIOGRAM QT CORRECTED INTERVAL PROLONGED [None]
